FAERS Safety Report 4508277-9 (Version None)
Quarter: 2004Q4

REPORT INFORMATION
  Report Type: 
  Country: None (occurrence: None)
  Receive Date: 20041123
  Receipt Date: 20031212
  Transmission Date: 20050328
  Serious: No
  Sender: FDA-Public Use
  Company Number: US-GLAXOSMITHKLINE-A0443000A

PATIENT
  Age: 59 Year
  Sex: Male

DRUGS (4)
  1. WELLBUTRIN [Suspect]
     Indication: DEPRESSION
     Dosage: 150MG PER DAY
     Route: 048
     Dates: start: 20010101
  2. UNSPECIFIED INHALER [Concomitant]
     Route: 065
  3. PROMETHAZINE [Concomitant]
  4. BEXTRA [Concomitant]

REACTIONS (1)
  - WHITE BLOOD CELL COUNT INCREASED [None]
